FAERS Safety Report 20678498 (Version 1)
Quarter: 2022Q2

REPORT INFORMATION
  Report Type: Spontaneous
  Country: AU (occurrence: None)
  Receive Date: 20220406
  Receipt Date: 20220406
  Transmission Date: 20220721
  Serious: Yes (Other)
  Sender: FDA-Public Use
  Company Number: 2022A134296

PATIENT
  Age: 67 Year
  Sex: Female

DRUGS (2)
  1. ASTRAZENECA COVID-19 VACCINE [Suspect]
     Active Substance: AZD-1222
     Route: 030
  2. PULMICORT TURBUHALER [Suspect]
     Active Substance: BUDESONIDE
     Route: 055

REACTIONS (4)
  - Stevens-Johnson syndrome [Unknown]
  - COVID-19 [Unknown]
  - Hypersensitivity [Unknown]
  - Off label use [Unknown]
